FAERS Safety Report 13138398 (Version 1)
Quarter: 2017Q1

REPORT INFORMATION
  Report Type: Spontaneous
  Country: US (occurrence: US)
  Receive Date: 20170123
  Receipt Date: 20170123
  Transmission Date: 20170428
  Serious: No
  Sender: FDA-Public Use
  Company Number: None

PATIENT
  Age: 54 Year
  Sex: Female
  Weight: 81.72 kg

DRUGS (6)
  1. VITAMIN D [Suspect]
     Active Substance: CHOLECALCIFEROL
     Indication: VITAMIN D DEFICIENCY
     Dosage: ?          QUANTITY:?1 C APSULE;?
     Route: 048
     Dates: start: 20170104, end: 20170105
  2. PREDNISONE. [Concomitant]
     Active Substance: PREDNISONE
  3. PROVENTIL HFA [Concomitant]
     Active Substance: ALBUTEROL SULFATE
  4. ESTER C [Concomitant]
  5. IMMUNE SUPPORT VITAMINS [Concomitant]
  6. SYMBICORT [Concomitant]
     Active Substance: BUDESONIDE\FORMOTEROL FUMARATE DIHYDRATE

REACTIONS (2)
  - Product physical issue [None]
  - Product colour issue [None]

NARRATIVE: CASE EVENT DATE: 20170105
